FAERS Safety Report 9409656 (Version 1)
Quarter: 2013Q3

REPORT INFORMATION
  Report Type: Spontaneous
  Country: NL (occurrence: NL)
  Receive Date: 20130719
  Receipt Date: 20130719
  Transmission Date: 20140515
  Serious: Yes (Hospitalization, Other)
  Sender: FDA-Public Use
  Company Number: NL-PFIZER INC-2013209783

PATIENT
  Age: 54 Year
  Sex: Male
  Weight: 96 kg

DRUGS (11)
  1. VENLAFAXINE HCL [Suspect]
     Indication: DEPRESSION
     Dosage: 150 MG, 1X/DAY
     Dates: start: 1997, end: 20130310
  2. METOPROLOL [Concomitant]
     Dosage: 100 MG, 2X/DAY
  3. SIMVASTATIN [Concomitant]
     Dosage: 20 MG, 1X/DAY
  4. OMEPRAZOL [Concomitant]
     Dosage: 20 MG, 1X/DAY
  5. THIAMINE [Concomitant]
     Dosage: 50 MG, 3X/DAY
  6. PRAZEPAM [Concomitant]
     Dosage: 10 / 20 MG, 1X/DAY
  7. LORAZEPAM [Concomitant]
     Dosage: 1 / 2 MG, 1X/DAY
  8. ASCAL CARDIO [Concomitant]
     Dosage: 100 MG, 1X/DAY
  9. PERINDOPRIL [Concomitant]
     Dosage: 5 MG, 1X/DAY
  10. PARACETAMOL [Concomitant]
     Dosage: 1000 MG, 2X/DAY
  11. SILDENAFIL [Concomitant]
     Dosage: 50 MG, 1X/DAY

REACTIONS (5)
  - Hepatitis toxic [Recovering/Resolving]
  - Alcoholic pancreatitis [Unknown]
  - Liver disorder [Unknown]
  - Alcohol abuse [Unknown]
  - Back pain [Unknown]
